FAERS Safety Report 9266722 (Version 1)
Quarter: 2013Q2

REPORT INFORMATION
  Report Type: Spontaneous
  Country: CH (occurrence: CH)
  Receive Date: 20130502
  Receipt Date: 20130502
  Transmission Date: 20140414
  Serious: Yes (Hospitalization)
  Sender: FDA-Public Use
  Company Number: CH-PFIZER INC-2013133751

PATIENT
  Age: 66 Year
  Sex: Male

DRUGS (10)
  1. CORDARONE [Suspect]
     Indication: ATRIAL FIBRILLATION
     Dosage: 200 MG, 3 TIMES A DAY
     Route: 048
     Dates: start: 201206
  2. CORDARONE [Interacting]
     Indication: ATRIAL FLUTTER
  3. MARCOUMAR [Suspect]
     Indication: ATRIAL FIBRILLATION
     Dosage: 3 MG, AS NEEDED
     Route: 048
     Dates: start: 201206, end: 20121125
  4. MARCOUMAR [Suspect]
     Indication: ATRIAL FLUTTER
  5. ASPIRIN CARDIO [Interacting]
     Indication: MYOCARDIAL ISCHAEMIA
     Dosage: 100 MG, ONCE DAILY
     Route: 048
  6. SORTIS [Concomitant]
     Dosage: 40 MG, DAILY
     Route: 048
  7. TRIATEC [Concomitant]
     Dosage: 2.5 MG, DAILY
     Route: 048
  8. NEXIUM [Concomitant]
     Dosage: 40 MG, DAILY
     Route: 048
  9. PREDNISONE [Concomitant]
     Dosage: 20 MG, DAILY
     Route: 048
  10. CALCIMAGON-D3 [Concomitant]
     Dosage: 500 MG, DAILY
     Route: 048

REACTIONS (5)
  - Drug interaction [Unknown]
  - International normalised ratio increased [Recovered/Resolved]
  - Subarachnoid haemorrhage [Unknown]
  - Syncope [Unknown]
  - Endocarditis staphylococcal [Recovered/Resolved]
